FAERS Safety Report 25431473 (Version 1)
Quarter: 2025Q2

REPORT INFORMATION
  Report Type: Report from Study
  Country: JP (occurrence: JP)
  Receive Date: 20250613
  Receipt Date: 20250613
  Transmission Date: 20250716
  Serious: Yes (Hospitalization, Other)
  Sender: TAKEDA
  Company Number: JP-TAKEDA-2025TJP001036

PATIENT
  Age: 58 Year
  Sex: Male

DRUGS (8)
  1. VEDOLIZUMAB [Suspect]
     Active Substance: VEDOLIZUMAB
     Indication: Crohn^s disease
     Dates: start: 20201028, end: 20210519
  2. MERCAPTOPURINE [Concomitant]
     Active Substance: MERCAPTOPURINE
     Indication: Crohn^s disease
  3. Posterisan forte [Concomitant]
  4. ACETAMINOPHEN [Concomitant]
     Active Substance: ACETAMINOPHEN
     Indication: Adverse event
     Dates: start: 20201111, end: 20210519
  5. BILASTINE [Concomitant]
     Active Substance: BILASTINE
     Indication: Adverse event
     Dates: start: 20201209, end: 20210331
  6. HERBALS [Concomitant]
     Active Substance: HERBALS
     Indication: Enteritis infectious
  7. LEVOFLOXACIN [Concomitant]
     Active Substance: LEVOFLOXACIN
     Indication: Enteritis infectious
  8. BUTYLSCOPOLAMINE BROMIDE [Concomitant]
     Active Substance: BUTYLSCOPOLAMINE BROMIDE
     Indication: Enteritis infectious

REACTIONS (6)
  - Enteritis infectious [Recovered/Resolved]
  - Abdominal abscess [Recovered/Resolved]
  - Upper respiratory tract inflammation [Recovered/Resolved]
  - Infusion related reaction [Recovered/Resolved]
  - Headache [Recovering/Resolving]
  - Anorectal discomfort [Recovered/Resolved]

NARRATIVE: CASE EVENT DATE: 20201028
